FAERS Safety Report 19977125 (Version 1)
Quarter: 2021Q4

REPORT INFORMATION
  Report Type: Spontaneous
  Country: US (occurrence: US)
  Receive Date: 20211020
  Receipt Date: 20211020
  Transmission Date: 20220303
  Serious: No
  Sender: FDA-Public Use
  Company Number: US-ALLERGAN-2130534US

PATIENT
  Sex: Female

DRUGS (4)
  1. LINZESS [Suspect]
     Active Substance: LINACLOTIDE
     Indication: Diverticulitis
     Dosage: 290 ?G, QD
     Route: 048
  2. LINZESS [Suspect]
     Active Substance: LINACLOTIDE
     Indication: Irritable bowel syndrome
  3. DIAZEPAM [Concomitant]
     Active Substance: DIAZEPAM
     Indication: Hypertension
     Dosage: 240MG
  4. ATORVASTATIN [Concomitant]
     Active Substance: ATORVASTATIN
     Indication: Blood cholesterol increased
     Dosage: 10MG

REACTIONS (5)
  - Off label use [Unknown]
  - Expired product administered [Unknown]
  - Poor quality product administered [Unknown]
  - Therapeutic response decreased [Unknown]
  - Product physical issue [Unknown]
